FAERS Safety Report 7813029-8 (Version None)
Quarter: 2011Q4

REPORT INFORMATION
  Report Type: 
  Country: None (occurrence: None)
  Receive Date: 20111013
  Receipt Date: 20111008
  Transmission Date: 20120403
  Serious: Yes (Congenital Anomaly)
  Sender: FDA-Public Use
  Company Number: US-AMGEN-KDC421824

PATIENT
  Age: 40 Year
  Sex: Female
  Weight: 115.8 kg

DRUGS (12)
  1. MULTI-VITAMINS [Concomitant]
     Dosage: UNK UNK, QD
     Route: 048
     Dates: start: 20100128, end: 20101104
  2. CALCIUM CARBONATE [Concomitant]
     Indication: DYSPEPSIA
     Dosage: UNK UNK, UNK
     Route: 048
     Dates: start: 20100311, end: 20111104
  3. ACETAMINOPHEN/DEXTROMETHORPHAN HBR/PSEUDOEPHEDRINE HCL [Concomitant]
     Dosage: UNK UNK, UNK
     Route: 048
     Dates: start: 20100215, end: 20100227
  4. OMEGA-3 TRIGLYCERIDES [Concomitant]
     Dosage: UNK UNK, 3 TIMES/WK
     Route: 048
     Dates: start: 20100312, end: 20111104
  5. SULFASALAZINE [Concomitant]
     Indication: RHEUMATOID ARTHRITIS
     Dosage: UNK UNK, QD
     Route: 048
     Dates: start: 20100128, end: 20100731
  6. IRON [Concomitant]
     Dosage: 130 MG, QD
     Route: 048
     Dates: start: 20100403, end: 20111104
  7. FLUTICASONE PROPIONATE [Concomitant]
     Indication: HYPERSENSITIVITY
     Dosage: UNK UNK, QD
     Route: 045
     Dates: start: 20100128, end: 20101104
  8. ETANERCEPT [Suspect]
     Indication: RHEUMATOID ARTHRITIS
     Dosage: 50 MG, QWK
     Dates: start: 20100128, end: 20100226
  9. TYLENOL-500 [Concomitant]
     Indication: HEADACHE
     Dosage: UNK UNK, UNK
     Route: 048
     Dates: start: 20100128
  10. FOLIC ACID [Concomitant]
     Dosage: UNK UNK, QD
     Route: 048
     Dates: start: 20100329, end: 20111104
  11. MEDINITE [Concomitant]
     Dosage: UNK UNK, UNK
     Route: 048
     Dates: start: 20100215, end: 20100227
  12. TYLENOL-500 [Concomitant]
     Indication: PAIN IN EXTREMITY

REACTIONS (5)
  - MATERNAL EXPOSURE DURING PREGNANCY [None]
  - TWIN PREGNANCY [None]
  - ABORTION INDUCED [None]
  - ANAEMIA [None]
  - NASOPHARYNGITIS [None]
